FAERS Safety Report 11880860 (Version 1)
Quarter: 2015Q4

REPORT INFORMATION
  Report Type: Spontaneous
  Country: JP (occurrence: JP)
  Receive Date: 20151230
  Receipt Date: 20151230
  Transmission Date: 20160305
  Serious: Yes (Hospitalization, Other)
  Sender: FDA-Public Use
  Company Number: JP-MYLANLABS-2015M1026115

PATIENT

DRUGS (4)
  1. ATONIN-O [Concomitant]
     Indication: UTERINE CONTRACTIONS DURING PREGNANCY
     Route: 064
  2. MAGNESIUM OXIDE MYLAN [Suspect]
     Active Substance: MAGNESIUM OXIDE
     Indication: PRODUCT USED FOR UNKNOWN INDICATION
     Route: 064
  3. PURGATIVE [Suspect]
     Active Substance: UNSPECIFIED INGREDIENT
     Indication: PRODUCT USED FOR UNKNOWN INDICATION
     Route: 064
  4. RITODRINE [Concomitant]
     Active Substance: RITODRINE
     Indication: UTERINE CONTRACTIONS DURING PREGNANCY
     Route: 064

REACTIONS (6)
  - Apnoeic attack [Unknown]
  - Pseudo-Bartter syndrome [Unknown]
  - Maternal drugs affecting foetus [None]
  - Metabolic alkalosis [Recovered/Resolved]
  - Foetal exposure during pregnancy [Unknown]
  - Foetal growth restriction [Unknown]
